FAERS Safety Report 7799097-0 (Version None)
Quarter: 2011Q4

REPORT INFORMATION
  Report Type: 
  Country: None (occurrence: None)
  Receive Date: 20111006
  Receipt Date: 20110930
  Transmission Date: 20120403
  Serious: Yes (Life-Threatening, Other)
  Sender: FDA-Public Use
  Company Number: AT-PFIZER INC-2011234720

PATIENT
  Age: 41 Year
  Sex: Female
  Weight: 68 kg

DRUGS (18)
  1. ZYPREXA [Suspect]
     Dosage: 2.5 MG, 1X/DAY
     Route: 048
     Dates: start: 20110210, end: 20110213
  2. TRAZODONE HCL [Concomitant]
     Dosage: 150 MG, 1X/DAY
     Route: 048
     Dates: start: 20110211
  3. NEXIUM [Concomitant]
     Dosage: 40 MG, 1X/DAY
     Route: 048
     Dates: start: 20090101
  4. SERETIDE [Concomitant]
     Dosage: 2 DF, 1X/DAY
     Dates: start: 20100101
  5. DAFLON [Concomitant]
     Dosage: UNK
  6. EFFEXOR XR [Suspect]
     Dosage: 150 MG, 1X/DAY
     Route: 048
     Dates: start: 20110210
  7. PARKEMED [Concomitant]
     Dosage: 2000 MG, 1X/DAY
     Route: 048
     Dates: start: 20090101, end: 20110209
  8. OXAZEPAM [Concomitant]
     Dosage: 30 MG, 1X/DAY
     Route: 048
     Dates: start: 20110210, end: 20110301
  9. OXAZEPAM [Concomitant]
     Dosage: 22.5 MG, 1X/DAY
     Route: 048
     Dates: start: 20110302, end: 20110313
  10. TIZANIDINE HCL [Concomitant]
     Dosage: 4 MG, 1X/DAY
     Route: 048
     Dates: start: 20100101, end: 20110209
  11. EFFEXOR XR [Suspect]
     Dosage: 75 MG, 1X/DAY
     Route: 048
     Dates: start: 20100101, end: 20110209
  12. ZYPREXA [Suspect]
     Dosage: 10 MG, 1X/DAY
     Route: 048
     Dates: start: 20110214, end: 20110309
  13. TRAZODONE HCL [Concomitant]
     Dosage: 250 MG, 1X/DAY
     Route: 048
     Dates: start: 20100101, end: 20110210
  14. OXAZEPAM [Concomitant]
     Dosage: 7.5 MG, 1X/DAY
     Route: 048
     Dates: start: 20110322, end: 20110404
  15. TIZANIDINE HCL [Concomitant]
     Dosage: 2 MG, 1X/DAY
     Route: 048
     Dates: start: 20110210, end: 20110211
  16. AEROMUC [Concomitant]
     Dosage: 600 MG, 1X/DAY
     Route: 048
     Dates: start: 20100101, end: 20110320
  17. OXAZEPAM [Concomitant]
     Dosage: 15 MG, 1X/DAY
     Route: 048
     Dates: start: 20110314, end: 20110321
  18. ATROVENT [Concomitant]
     Dosage: 2 DF, 1X/DAY
     Dates: start: 20090101

REACTIONS (5)
  - UTERINE LEIOMYOMA [None]
  - VISUAL FIELD DEFECT [None]
  - GALACTORRHOEA [None]
  - PROLACTINOMA [None]
  - MENSTRUATION IRREGULAR [None]
